FAERS Safety Report 21324446 (Version 4)
Quarter: 2022Q3

REPORT INFORMATION
  Report Type: Spontaneous
  Country: NL (occurrence: NL)
  Receive Date: 20220912
  Receipt Date: 20220926
  Transmission Date: 20221027
  Serious: Yes (Other)
  Sender: FDA-Public Use
  Company Number: NL-MLMSERVICE-20220829-3767409-1

PATIENT
  Age: 70 Year
  Sex: Female
  Weight: 67 kg

DRUGS (4)
  1. CYTARABINE [Suspect]
     Active Substance: CYTARABINE
     Indication: Diffuse large B-cell lymphoma stage IV
     Dosage: 2000 MG/M2 TWICE DAILY ON DAY 2 (RDHAP)
     Route: 042
     Dates: start: 202006, end: 2020
  2. CISPLATIN [Suspect]
     Active Substance: CISPLATIN
     Indication: Diffuse large B-cell lymphoma stage IV
     Dosage: 100 MG/M2, CYCLIC ON DAY 1
     Route: 042
     Dates: start: 202006, end: 2020
  3. RITUXIMAB [Suspect]
     Active Substance: RITUXIMAB
     Indication: Diffuse large B-cell lymphoma stage IV
     Dosage: 375 MG/M2, CYCLIC DAY 1
     Route: 042
     Dates: start: 202006, end: 2020
  4. DEXAMETHASONE [Suspect]
     Active Substance: DEXAMETHASONE
     Indication: Diffuse large B-cell lymphoma stage IV
     Dosage: 40 MG ONCE DAILY ON DAYS 1 UP TO AND INCLUDING 4
     Route: 048
     Dates: start: 202006, end: 2020

REACTIONS (4)
  - Erysipelas [Unknown]
  - Inappropriate antidiuretic hormone secretion [Unknown]
  - Neutropenia [Unknown]
  - Deep vein thrombosis [Unknown]

NARRATIVE: CASE EVENT DATE: 20200101
